FAERS Safety Report 7720854-0 (Version None)
Quarter: 2011Q3

REPORT INFORMATION
  Report Type: 
  Country: None (occurrence: None)
  Receive Date: 20110825
  Receipt Date: 20110810
  Transmission Date: 20111222
  Serious: Yes (Hospitalization)
  Sender: FDA-Public Use
  Company Number: 15863962

PATIENT
  Age: 70 Year
  Sex: Female

DRUGS (13)
  1. PLACEBO [Suspect]
     Indication: EMBOLISM
     Route: 048
     Dates: start: 20110514
  2. PIRIBEDIL (PIRIBEDIL) [Concomitant]
  3. INNOHEP [Concomitant]
  4. ATORVASTATIN [Concomitant]
  5. BISOPROLOL (BISOPROLOL FUMARATE) [Concomitant]
  6. PRAMIPEXOLE HCL (PRAMIPEXOLE HCL) [Concomitant]
  7. WARFARIN SODIUM [Suspect]
     Indication: EMBOLISM
     Dosage: 3 MILLIGRAM
     Route: 048
     Dates: start: 20110514
  8. ENOXAPARIN SODIUM [Suspect]
     Indication: EMBOLISM
     Dosage: .8 MILLILITER 2/1 DAY
     Route: 048
     Dates: start: 20110514
  9. MEPRONIZINE (MEPROBAMATE + ACEPROMETAZINE) [Concomitant]
  10. CALTRATE VITAMINE D3 (CALCIUM CARBONATE + COLECALCIFEROL) [Concomitant]
  11. APIXABAN [Suspect]
     Indication: EMBOLISM
     Dosage: 20 MILLIGRAM 1 DAY
     Route: 048
     Dates: start: 20110514
  12. ZALDIAR (TRAMADOL HCL +ACETAMINOPHEN) [Concomitant]
  13. TRIMETAZIDINE (TRIMETAZIDINE HCL) [Concomitant]

REACTIONS (1)
  - ENDOMETRIAL HYPERTROPHY [None]
